FAERS Safety Report 4597613-3 (Version None)
Quarter: 2005Q1

REPORT INFORMATION
  Report Type: 
  Country: None (occurrence: None)
  Receive Date: 20050228
  Receipt Date: 20050228
  Transmission Date: 20050727
  Serious: Yes (Hospitalization)
  Sender: FDA-Public Use
  Company Number: None

PATIENT
  Sex: Male

DRUGS (8)
  1. GLYBURIDE [Suspect]
     Indication: DIABETES MELLITUS
     Dosage: 5 MG Q AM ORAL
     Route: 048
  2. ASPIRIN [Concomitant]
  3. LOVASTATIN [Concomitant]
  4. TERAZOSIN [Concomitant]
  5. LISINOPRIL [Concomitant]
  6. PAROXETINE HCL [Concomitant]
  7. METFORMIN [Concomitant]
  8. RABEPRAZOLE SODIUM [Concomitant]

REACTIONS (1)
  - HYPOGLYCAEMIA [None]
